FAERS Safety Report 9031437 (Version 1)
Quarter: 2013Q1

REPORT INFORMATION
  Report Type: Spontaneous
  Country: DE (occurrence: DE)
  Receive Date: 20130124
  Receipt Date: 20130124
  Transmission Date: 20140127
  Serious: Yes (Hospitalization)
  Sender: FDA-Public Use
  Company Number: DE-ASTRAZENECA-2013SE03094

PATIENT
  Age: 1006 Month
  Sex: Female

DRUGS (1)
  1. BRILIQUE [Suspect]
     Indication: STENT PLACEMENT
     Route: 048
     Dates: start: 201210, end: 20130105

REACTIONS (2)
  - Renal failure [Recovering/Resolving]
  - Pruritus generalised [Recovering/Resolving]
